FAERS Safety Report 14692271 (Version 5)
Quarter: 2022Q2

REPORT INFORMATION
  Report Type: Other
  Country: US (occurrence: None)
  Receive Date: 20180329
  Receipt Date: 20220429
  Transmission Date: 20220720
  Serious: Yes (Other)
  Sender: FDA-Public Use
  Company Number: US-ROCHE-2058394

PATIENT
  Age: 57 Year
  Sex: Female

DRUGS (7)
  1. ALECTINIB [Suspect]
     Active Substance: ALECTINIB
     Indication: Neoplasm malignant
     Route: 048
     Dates: start: 201710, end: 20180116
  2. ALECTINIB [Suspect]
     Active Substance: ALECTINIB
     Indication: Lung neoplasm malignant
     Route: 048
     Dates: start: 20171009
  3. ALECTINIB [Suspect]
     Active Substance: ALECTINIB
     Route: 048
     Dates: start: 201710, end: 20180116
  4. ALECTINIB [Suspect]
     Active Substance: ALECTINIB
     Route: 048
     Dates: start: 20171008
  5. ALECTINIB [Suspect]
     Active Substance: ALECTINIB
     Dosage: TAKE 2 CAPSULE(S) BY MOUTH TWICE A DAY WITH FOOD.
     Route: 048
  6. MODERNA COVID-19 VACCINE [Concomitant]
     Active Substance: ELASOMERAN
  7. MOTRIN [Concomitant]
     Active Substance: IBUPROFEN

REACTIONS (9)
  - Jaundice [Recovered/Resolved]
  - Renal impairment [Recovered/Resolved]
  - Blood bilirubin increased [Unknown]
  - Lung disorder [Unknown]
  - Hepatic function abnormal [Recovered/Resolved]
  - Migraine [Unknown]
  - Decreased appetite [Unknown]
  - Pain [Unknown]
  - Chills [Unknown]

NARRATIVE: CASE EVENT DATE: 20180116
